FAERS Safety Report 20662078 (Version 11)
Quarter: 2022Q3

REPORT INFORMATION
  Report Type: Report from Study
  Country: GB (occurrence: GB)
  Receive Date: 20220401
  Receipt Date: 20220805
  Transmission Date: 20221027
  Serious: Yes (Hospitalization, Other)
  Sender: FDA-Public Use
  Company Number: GB-CELLTRION INC.-2022GB003472

PATIENT

DRUGS (40)
  1. TRASTUZUMAB [Suspect]
     Active Substance: TRASTUZUMAB
     Indication: Breast cancer metastatic
     Dosage: NUMBER OF CYCLES PER REGIMEN: 6, 546 MG 1 DAYS
     Route: 042
     Dates: start: 20160628, end: 20160628
  2. TRASTUZUMAB [Suspect]
     Active Substance: TRASTUZUMAB
     Dosage: NUMBER OF CYCLES PER REGIMEN: 6, 546 MG 1 DAYS
     Route: 042
     Dates: start: 20160628, end: 20160628
  3. TRASTUZUMAB [Suspect]
     Active Substance: TRASTUZUMAB
     Dosage: NUMBER OF CYCLES PER REGIMEN: 6, 546 MG 1 DAYS
     Route: 042
     Dates: start: 20160628, end: 20160628
  4. TRASTUZUMAB [Suspect]
     Active Substance: TRASTUZUMAB
     Dosage: NUMBER OF CYCLES PER REGIMEN: 6, 546 MG 1 DAYS
     Route: 042
     Dates: start: 20160628, end: 20160628
  5. TRASTUZUMAB [Suspect]
     Active Substance: TRASTUZUMAB
     Dosage: NUMBER OF CYCLES PER REGIMEN: 6, 399 MG 3 WEEKS
     Route: 042
     Dates: start: 20160803, end: 20160824
  6. TRASTUZUMAB [Suspect]
     Active Substance: TRASTUZUMAB
     Dosage: NUMBER OF CYCLES PER REGIMEN: 6, 399 MG 3 WEEKS
     Route: 042
     Dates: start: 20160803, end: 20160824
  7. TRASTUZUMAB [Suspect]
     Active Substance: TRASTUZUMAB
     Dosage: NUMBER OF CYCLES PER REGIMEN: 6, 399 MG 3 WEEKS
     Route: 042
     Dates: start: 20160803, end: 20160824
  8. TRASTUZUMAB [Suspect]
     Active Substance: TRASTUZUMAB
     Dosage: NUMBER OF CYCLES PER REGIMEN: 6, 399 MG 3 WEEKS
     Route: 042
     Dates: start: 20160803, end: 20160824
  9. TRASTUZUMAB [Suspect]
     Active Substance: TRASTUZUMAB
     Dosage: 399 MG, TIW (NUMBER OF CYCLES PER REGIMEN: 6)
     Route: 042
     Dates: start: 20160824
  10. TRASTUZUMAB [Suspect]
     Active Substance: TRASTUZUMAB
     Dosage: 399 MG, TIW (NUMBER OF CYCLES PER REGIMEN: 6)
     Route: 042
     Dates: start: 20160824
  11. TRASTUZUMAB [Suspect]
     Active Substance: TRASTUZUMAB
     Dosage: 399 MG, TIW (NUMBER OF CYCLES PER REGIMEN: 6)
     Route: 042
     Dates: start: 20160824
  12. TRASTUZUMAB [Suspect]
     Active Substance: TRASTUZUMAB
     Dosage: 399 MG, TIW (NUMBER OF CYCLES PER REGIMEN: 6)
     Route: 042
     Dates: start: 20160824
  13. TRASTUZUMAB [Suspect]
     Active Substance: TRASTUZUMAB
     Dosage: NUMBER OF CYCLES PER REGIMEN: 6, 357 MG 3 WEEKS
     Route: 042
     Dates: start: 20160921
  14. TRASTUZUMAB [Suspect]
     Active Substance: TRASTUZUMAB
     Dosage: NUMBER OF CYCLES PER REGIMEN: 6, 357 MG 3 WEEKS
     Route: 042
     Dates: start: 20160921
  15. TRASTUZUMAB [Suspect]
     Active Substance: TRASTUZUMAB
     Dosage: NUMBER OF CYCLES PER REGIMEN: 6, 357 MG 3 WEEKS
     Route: 042
     Dates: start: 20160921
  16. TRASTUZUMAB [Suspect]
     Active Substance: TRASTUZUMAB
     Dosage: NUMBER OF CYCLES PER REGIMEN: 6, 357 MG 3 WEEKS
     Route: 042
     Dates: start: 20160921
  17. DOCETAXEL [Suspect]
     Active Substance: DOCETAXEL
     Indication: Breast cancer metastatic
     Dosage: 132 MG 1 WEEKS (CUMULATIVE DOSE: 773.1429 MG)
     Route: 042
     Dates: start: 20160728, end: 20160803
  18. DOCETAXEL [Suspect]
     Active Substance: DOCETAXEL
     Dosage: 132 MG 1 WEEKS (CUMULATIVE DOSE: 773.1429 MG)
     Route: 042
     Dates: start: 20160728, end: 20160803
  19. DOCETAXEL [Suspect]
     Active Substance: DOCETAXEL
     Dosage: 132 MG, QW (CUMULATIVE DOSE: 660.0 MG)
     Route: 042
     Dates: start: 20160803
  20. DOCETAXEL [Suspect]
     Active Substance: DOCETAXEL
     Dosage: 132 MG, QW (CUMULATIVE DOSE: 660.0 MG)
     Route: 042
     Dates: start: 20160803
  21. FASLODEX [Suspect]
     Active Substance: FULVESTRANT
     Indication: Product used for unknown indication
     Dosage: 500 MG 2 WEEKS
     Route: 030
     Dates: start: 20170130, end: 20170228
  22. PERTUZUMAB [Suspect]
     Active Substance: PERTUZUMAB
     Indication: HER2 positive breast cancer
     Dosage: NUMBER OF CYCLES PER REGIMEN: 6, 840 MG 1 DAYS
     Route: 042
     Dates: start: 20160728, end: 20160728
  23. PERTUZUMAB [Suspect]
     Active Substance: PERTUZUMAB
     Dosage: NUMBER OF CYCLES PER REGIMEN: 6, 840 MG 1 DAYS
     Route: 042
     Dates: start: 20160728, end: 20160728
  24. PERTUZUMAB [Suspect]
     Active Substance: PERTUZUMAB
     Dosage: NUMBER OF CYCLES PER REGIMEN: 6, 420 MG 3 WEEKS
     Route: 042
     Dates: start: 20160803
  25. PERTUZUMAB [Suspect]
     Active Substance: PERTUZUMAB
     Dosage: NUMBER OF CYCLES PER REGIMEN: 6, 420 MG 3 WEEKS
     Route: 042
     Dates: start: 20160803
  26. CALCIUM\CHOLECALCIFEROL [Concomitant]
     Active Substance: CALCIUM\CHOLECALCIFEROL
     Indication: Vitamin D deficiency
     Dosage: 1 DOSAGE FORMS DAILY; 1 TABLET EVERY NIGHT (ON)
     Route: 048
  27. CALCIUM\CHOLECALCIFEROL [Concomitant]
     Active Substance: CALCIUM\CHOLECALCIFEROL
     Indication: Calcium deficiency
     Dosage: UNK
  28. AMOXICILLIN\CLAVULANATE POTASSIUM [Concomitant]
     Active Substance: AMOXICILLIN\CLAVULANATE POTASSIUM
     Indication: Product used for unknown indication
     Dosage: OTHER: OVER THE COURSE OF 4 DAYS, 625 MG
     Route: 048
     Dates: start: 20160815, end: 20160819
  29. CYCLIZINE [Concomitant]
     Active Substance: CYCLIZINE
     Indication: Nausea
     Dosage: 50 MG
     Route: 048
  30. DIHYDROCODEINE [Concomitant]
     Active Substance: DIHYDROCODEINE
     Indication: Pain
     Dosage: 30 MGS
     Route: 048
     Dates: start: 20161116
  31. POLYETHYLENE GLYCOL 3350\POTASSIUM CHLORIDE\SODIUM BICARBONATE\SODIUM [Concomitant]
     Active Substance: POLYETHYLENE GLYCOL 3350\POTASSIUM CHLORIDE\SODIUM BICARBONATE\SODIUM CHLORIDE
     Indication: Diarrhoea
     Dosage: 2 OT, QD (1 OTHER SACHET)
     Route: 048
     Dates: start: 20161121, end: 20161122
  32. ACETAMINOPHEN [Concomitant]
     Active Substance: ACETAMINOPHEN
     Indication: Abdominal pain lower
     Dosage: 1000 MILLIGRAM DAILY; 500 MG BID
     Route: 048
  33. ACETAMINOPHEN [Concomitant]
     Active Substance: ACETAMINOPHEN
     Dosage: 1000 MILLIGRAM DAILY; 1000 MG, QD
     Route: 048
  34. RANITIDINE [Concomitant]
     Active Substance: RANITIDINE
     Indication: Product used for unknown indication
     Dosage: 300 MILLIGRAM DAILY; 150 MG, BID
     Route: 048
     Dates: start: 20160811
  35. ALBUTEROL [Concomitant]
     Active Substance: ALBUTEROL
     Indication: Asthma
     Dosage: 2 DF, QD (2 PUFFS QDS WHEN NECESSARY)
     Route: 048
  36. ALBUTEROL [Concomitant]
     Active Substance: ALBUTEROL
     Dosage: 1DF (1 PUFF)
     Route: 048
  37. PIPERACILLIN SODIUM\TAZOBACTAM SODIUM [Concomitant]
     Active Substance: PIPERACILLIN SODIUM\TAZOBACTAM SODIUM
     Indication: Product used for unknown indication
     Dosage: 13.5 MILLIGRAM DAILY; 13.5 MG, QD (CUMULATIVE DOSE: 364.5 MG)
     Route: 042
     Dates: start: 20160811
  38. PIPERACILLIN SODIUM\TAZOBACTAM SODIUM [Concomitant]
     Active Substance: PIPERACILLIN SODIUM\TAZOBACTAM SODIUM
     Dosage: 5 MG
     Route: 042
     Dates: start: 20160811, end: 20160813
  39. PIPERACILLIN SODIUM\TAZOBACTAM SODIUM [Concomitant]
     Active Substance: PIPERACILLIN SODIUM\TAZOBACTAM SODIUM
     Dosage: 13.5 MILLIGRAM DAILY; 13.5 MG, QD (337.5 MG)
     Route: 042
     Dates: start: 20160813
  40. PIPERACILLIN SODIUM\TAZOBACTAM SODIUM [Concomitant]
     Active Substance: PIPERACILLIN SODIUM\TAZOBACTAM SODIUM
     Dosage: 4.5 MG
     Route: 042
     Dates: start: 20160811, end: 20160813

REACTIONS (6)
  - Biliary sepsis [Recovered/Resolved with Sequelae]
  - Constipation [Recovered/Resolved]
  - Overflow diarrhoea [Recovered/Resolved]
  - Abdominal pain [Unknown]
  - Abdominal pain lower [Unknown]
  - Off label use [Unknown]

NARRATIVE: CASE EVENT DATE: 20160907
